FAERS Safety Report 11157217 (Version 1)
Quarter: 2015Q2

REPORT INFORMATION
  Report Type: Spontaneous
  Country: BR (occurrence: BR)
  Receive Date: 20150602
  Receipt Date: 20150602
  Transmission Date: 20150821
  Serious: Yes (Hospitalization)
  Sender: FDA-Public Use
  Company Number: PHHY2015BR063436

PATIENT
  Sex: Female

DRUGS (1)
  1. CIPROFLOXACIN SANDOZ [Suspect]
     Active Substance: CIPROFLOXACIN
     Indication: RENAL DISORDER
     Dosage: 500 MG, UNK
     Route: 065

REACTIONS (4)
  - Vomiting [Unknown]
  - Feeling abnormal [Unknown]
  - Pneumonia [Unknown]
  - Condition aggravated [Unknown]
